FAERS Safety Report 9316402 (Version 2)
Quarter: 2013Q2

REPORT INFORMATION
  Report Type: Spontaneous
  Country: US (occurrence: US)
  Receive Date: 20130530
  Receipt Date: 20130607
  Transmission Date: 20140414
  Serious: No
  Sender: FDA-Public Use
  Company Number: US-009507513-1305USA012632

PATIENT
  Age: 4 Year
  Sex: Male

DRUGS (2)
  1. SINGULAIR [Suspect]
     Indication: RESPIRATORY DISORDER
     Dosage: 4 MG, QD
     Route: 048
     Dates: start: 201304
  2. ALBUTEROL [Concomitant]

REACTIONS (1)
  - Dysphemia [Not Recovered/Not Resolved]
